FAERS Safety Report 24433590 (Version 1)
Quarter: 2024Q4

REPORT INFORMATION
  Report Type: Spontaneous
  Country: US (occurrence: US)
  Receive Date: 20241014
  Receipt Date: 20241014
  Transmission Date: 20250115
  Serious: No
  Sender: SPROUT PHARMACEUTICALS, INC.
  Company Number: US-Sprout Pharmaceuticals, Inc.-2023SP000328

PATIENT
  Age: 28 Year
  Sex: Male

DRUGS (1)
  1. ADDYI [Suspect]
     Active Substance: FLIBANSERIN
     Indication: Male sexual dysfunction
     Route: 048

REACTIONS (8)
  - Nocturia [Unknown]
  - Product use issue [Not Recovered/Not Resolved]
  - Product use in unapproved indication [Not Recovered/Not Resolved]
  - Therapeutic response unexpected [Unknown]
  - Depressive symptom [Unknown]
  - Aggression [Unknown]
  - Insomnia [Unknown]
  - Somnolence [Unknown]
